FAERS Safety Report 9434200 (Version 1)
Quarter: 2013Q3

REPORT INFORMATION
  Report Type: Spontaneous
  Country: US (occurrence: None)
  Receive Date: 20130730
  Receipt Date: 20130730
  Transmission Date: 20140515
  Serious: Yes (Hospitalization)
  Sender: FDA-Public Use
  Company Number: None

PATIENT
  Age: 55 Year
  Sex: Male
  Weight: 63.5 kg

DRUGS (3)
  1. TADALAFIL [Suspect]
     Indication: SQUAMOUS CELL CARCINOMA OF THE TONGUE
     Dosage: TADALAFIL 10 MG ONCE A DAY ORAL
     Route: 048
     Dates: start: 20130530, end: 20130618
  2. TADALAFIL [Suspect]
     Indication: SQUAMOUS CELL CARCINOMA OF THE TONGUE
     Dosage: TADALAFIL OR PLACEBO 20 MG
     Route: 048
     Dates: start: 20130530, end: 20130618
  3. OXYCODONE-ACETAMINOPHEN [Concomitant]

REACTIONS (5)
  - Mouth haemorrhage [None]
  - Medical device complication [None]
  - Scab [None]
  - Wound [None]
  - Adverse event [None]
